FAERS Safety Report 4966141-5 (Version None)
Quarter: 2006Q2

REPORT INFORMATION
  Report Type: 
  Country: None (occurrence: None)
  Receive Date: 20060403
  Receipt Date: 20060323
  Transmission Date: 20061013
  Serious: Yes (Death, Other)
  Sender: FDA-Public Use
  Company Number: 2006040967

PATIENT
  Age: 34 Year
  Sex: Female

DRUGS (2)
  1. MISOPROSTOL [Suspect]
     Indication: ILL-DEFINED DISORDER
     Dosage: VAGINAL
     Route: 067
  2. MIFEPRISTONE (MIFEPRISTONE) [Suspect]
     Indication: ILL-DEFINED DISORDER

REACTIONS (6)
  - ABDOMINAL PAIN [None]
  - ADRENAL INSUFFICIENCY [None]
  - DIZZINESS [None]
  - HAEMORRHAGE [None]
  - INFECTION [None]
  - SEPTIC SHOCK [None]
